FAERS Safety Report 10236237 (Version 3)
Quarter: 2014Q2

REPORT INFORMATION
  Report Type: Spontaneous
  Country: DE (occurrence: DE)
  Receive Date: 20140613
  Receipt Date: 20140617
  Transmission Date: 20141212
  Serious: Yes (Other)
  Sender: FDA-Public Use
  Company Number: DE-BAYER-2014-075653

PATIENT
  Age: 58 Year
  Sex: Male

DRUGS (4)
  1. MAGNEVIST [Suspect]
     Indication: NUCLEAR MAGNETIC RESONANCE IMAGING
     Dosage: UNK
     Dates: start: 200602, end: 200604
  2. MAGNEVIST [Suspect]
     Indication: RENAL FAILURE ACUTE
  3. OMNISCAN [Suspect]
     Indication: NUCLEAR MAGNETIC RESONANCE IMAGING
     Dosage: UNK
     Dates: start: 200602, end: 200604
  4. OMNISCAN [Suspect]
     Indication: RENAL FAILURE ACUTE

REACTIONS (8)
  - Nephrogenic systemic fibrosis [Recovering/Resolving]
  - Erythema [Recovering/Resolving]
  - Pain of skin [Recovering/Resolving]
  - Skin hypertrophy [Recovering/Resolving]
  - Skin plaque [Recovering/Resolving]
  - Rash papular [Recovering/Resolving]
  - Skin plaque [Recovering/Resolving]
  - Hair texture abnormal [Recovering/Resolving]
